FAERS Safety Report 9284423 (Version 1)
Quarter: 2013Q2

REPORT INFORMATION
  Report Type: Spontaneous
  Country: US (occurrence: US)
  Receive Date: 20130510
  Receipt Date: 20130510
  Transmission Date: 20140414
  Serious: Yes (Other)
  Sender: FDA-Public Use
  Company Number: CHPA2013US007939

PATIENT
  Age: 56 Year
  Sex: Male

DRUGS (2)
  1. PRIVATE LABEL [Suspect]
     Indication: SMOKING CESSATION THERAPY
     Dosage: 21 MG, UNK
     Route: 062
     Dates: start: 20130507
  2. PRIVATE LABEL [Suspect]
     Dosage: UNK, UNK
     Route: 062

REACTIONS (2)
  - Bipolar disorder [Not Recovered/Not Resolved]
  - Insomnia [Unknown]
